FAERS Safety Report 23881427 (Version 1)
Quarter: 2024Q2

REPORT INFORMATION
  Report Type: Spontaneous
  Country: US (occurrence: US)
  Receive Date: 20240521
  Receipt Date: 20240521
  Transmission Date: 20240716
  Serious: Yes (Other)
  Sender: FDA-Public Use
  Company Number: US-BRACCO-2024US02705

PATIENT
  Sex: Male

DRUGS (1)
  1. VUEWAY [Suspect]
     Active Substance: GADOPICLENOL
     Indication: Magnetic resonance imaging
     Dosage: UNK UNK, SINGLE
     Route: 065

REACTIONS (5)
  - Urine analysis abnormal [Unknown]
  - Blood pressure increased [Unknown]
  - Paraesthesia [Unknown]
  - Headache [Unknown]
  - Bone pain [Unknown]
